FAERS Safety Report 19774360 (Version 5)
Quarter: 2024Q2

REPORT INFORMATION
  Report Type: Spontaneous
  Country: US (occurrence: None)
  Receive Date: 20210901
  Receipt Date: 20240528
  Transmission Date: 20240716
  Serious: Yes (Hospitalization)
  Sender: FDA-Public Use
  Company Number: US-ROCHE-2901567

PATIENT
  Age: 54 Year
  Sex: Male

DRUGS (9)
  1. HEMLIBRA [Suspect]
     Active Substance: EMICIZUMAB-KXWH
     Indication: Factor VIII deficiency
     Dosage: 105 MG/ 7 ML
     Route: 058
     Dates: start: 20210707
  2. HEMLIBRA [Suspect]
     Active Substance: EMICIZUMAB-KXWH
     Dosage: STRENGTH: 105 MG/ 0.7 ML
     Route: 058
     Dates: start: 202306
  3. SELZENTRY [Concomitant]
     Active Substance: MARAVIROC
  4. RITONAVIR [Concomitant]
     Active Substance: RITONAVIR
  5. ISENTRESS [Concomitant]
     Active Substance: RALTEGRAVIR POTASSIUM
  6. DARUNAVIR [Concomitant]
     Active Substance: DARUNAVIR
  7. MARAVIROC [Concomitant]
     Active Substance: MARAVIROC
  8. NORVIR [Concomitant]
     Active Substance: RITONAVIR
  9. JULUCA [Concomitant]
     Active Substance: DOLUTEGRAVIR SODIUM\RILPIVIRINE HYDROCHLORIDE

REACTIONS (7)
  - Pancreatitis [Unknown]
  - Nephrolithiasis [Unknown]
  - Abdominal pain [Unknown]
  - Pancreatic mass [Unknown]
  - Haemorrhage [Recovered/Resolved]
  - Muscle strain [Unknown]
  - Poor venous access [Unknown]

NARRATIVE: CASE EVENT DATE: 20210730
